FAERS Safety Report 21472844 (Version 3)
Quarter: 2022Q4

REPORT INFORMATION
  Report Type: Spontaneous
  Country: IN (occurrence: IN)
  Receive Date: 20221018
  Receipt Date: 20221228
  Transmission Date: 20230112
  Serious: Yes (Other)
  Sender: FDA-Public Use
  Company Number: IN-PFIZER INC-PV202200055402

PATIENT
  Age: 61 Year
  Sex: Female

DRUGS (7)
  1. PALBOCICLIB [Suspect]
     Active Substance: PALBOCICLIB
     Indication: Breast cancer metastatic
     Dosage: 125 MG, 1X/DAY
     Route: 048
     Dates: start: 202206
  2. PALBOCICLIB [Suspect]
     Active Substance: PALBOCICLIB
     Dosage: 100 MG, CYCLIC (1X/DAY DOR 21 DAYS)
  3. PALBOCICLIB [Suspect]
     Active Substance: PALBOCICLIB
     Dosage: UNK
     Dates: end: 202211
  4. ZOLEDRONIC ACID [Concomitant]
     Active Substance: ZOLEDRONIC ACID
     Dosage: 4 MG
     Dates: start: 202206
  5. IDROFOS [Concomitant]
     Dosage: 50 MG, 1X/DAY EARLY MORNING EMPTY STOMACH WITH 100 ML OF WATER
  6. LETROZOLE [Concomitant]
     Active Substance: LETROZOLE
     Dosage: 2.5 MG, 1X/DAY
  7. DEXORANGE [Concomitant]
     Dosage: 1 DF, 1X/DAY, IF GOING BELOW 7.5 TO TRANSFUSE

REACTIONS (7)
  - Renal impairment [Unknown]
  - Red blood cell count decreased [Unknown]
  - Red cell distribution width increased [Unknown]
  - Haemoglobin decreased [Unknown]
  - Heart rate increased [Unknown]
  - Decreased appetite [Unknown]
  - Neoplasm progression [Unknown]
